FAERS Safety Report 10535016 (Version 1)
Quarter: 2014Q4

REPORT INFORMATION
  Report Type: Spontaneous
  Country: US (occurrence: US)
  Receive Date: 20141022
  Receipt Date: 20141022
  Transmission Date: 20150529
  Serious: No
  Sender: FDA-Public Use
  Company Number: US-ASTRAZENECA-2014SE07036

PATIENT
  Age: 75 Year
  Sex: Female
  Weight: 76.2 kg

DRUGS (1)
  1. CRESTOR [Suspect]
     Active Substance: ROSUVASTATIN CALCIUM
     Indication: LOW DENSITY LIPOPROTEIN INCREASED
     Route: 048
     Dates: start: 2013

REACTIONS (3)
  - Dyspepsia [Unknown]
  - Insomnia [Unknown]
  - Abdominal discomfort [Unknown]
